FAERS Safety Report 18664257 (Version 1)
Quarter: 2020Q4

REPORT INFORMATION
  Report Type: Spontaneous
  Country: US (occurrence: US)
  Receive Date: 20201225
  Receipt Date: 20201225
  Transmission Date: 20210114
  Serious: No
  Sender: FDA-Public Use
  Company Number: US-ASTRAZENECA-2020SF59904

PATIENT
  Age: 72 Year
  Sex: Male
  Weight: 104.3 kg

DRUGS (1)
  1. BUDESONIDE AND FORMOTEROL AEROSOL [Suspect]
     Active Substance: BUDESONIDE\FORMOTEROL FUMARATE DIHYDRATE
     Indication: DYSPNOEA
     Dosage: 160 UG/INHAL,TWO TIMES A DAY
     Route: 055
     Dates: start: 20201007

REACTIONS (4)
  - Wrong technique in device usage process [Unknown]
  - Drug delivery system issue [Unknown]
  - Dyspnoea [Unknown]
  - Product taste abnormal [Unknown]
